FAERS Safety Report 24304857 (Version 1)
Quarter: 2024Q3

REPORT INFORMATION
  Report Type: Spontaneous
  Country: PT (occurrence: PT)
  Receive Date: 20240910
  Receipt Date: 20240910
  Transmission Date: 20241016
  Serious: Yes (Other)
  Sender: ABBVIE
  Company Number: PT-ABBVIE-5906965

PATIENT
  Age: 67 Year
  Sex: Female

DRUGS (5)
  1. TIMOLOL [Suspect]
     Active Substance: TIMOLOL
     Indication: Arteriovenous fistula
     Dosage: 38 MM HG
     Route: 061
  2. BRIMONIDINE [Suspect]
     Active Substance: BRIMONIDINE TARTRATE
     Indication: Arteriovenous fistula
     Dosage: TIME INTERVAL: 0.33333333 DAYS
     Route: 061
  3. ACETAZOLAMIDE [Suspect]
     Active Substance: ACETAZOLAMIDE
     Indication: Arteriovenous fistula
     Route: 048
  4. ASPIRIN [Concomitant]
     Active Substance: ASPIRIN
     Indication: Antiplatelet therapy
     Route: 065
  5. TICAGRELOR [Concomitant]
     Active Substance: TICAGRELOR
     Indication: Antiplatelet therapy
     Route: 065

REACTIONS (2)
  - Venous occlusion [Unknown]
  - Drug ineffective [Unknown]
